FAERS Safety Report 7392789-7 (Version None)
Quarter: 2011Q2

REPORT INFORMATION
  Report Type: 
  Country: None (occurrence: None)
  Receive Date: 20110404
  Receipt Date: 20110323
  Transmission Date: 20111010
  Serious: Yes (Hospitalization)
  Sender: FDA-Public Use
  Company Number: PHHO2010DE08092

PATIENT
  Sex: Female

DRUGS (5)
  1. DIALYSIS [Concomitant]
  2. SANDIMMUNE [Suspect]
     Indication: RENAL TRANSPLANT
     Dosage: 150 MG, BID
     Route: 048
     Dates: start: 20100105, end: 20100120
  3. MYFORTIC [Concomitant]
     Indication: RENAL TRANSPLANT
     Dosage: 1440 MG, BID
     Route: 048
     Dates: start: 20100105
  4. PREDNISONE [Concomitant]
     Indication: RENAL TRANSPLANT
     Dosage: 20 MG
  5. NO TREATMENT RECEIVED [Suspect]
     Indication: RENAL TRANSPLANT
     Dosage: NO TREATMENT

REACTIONS (3)
  - KIDNEY FIBROSIS [None]
  - COMPLICATIONS OF TRANSPLANTED KIDNEY [None]
  - NECROSIS ISCHAEMIC [None]
